FAERS Safety Report 7446597-9 (Version None)
Quarter: 2011Q2

REPORT INFORMATION
  Report Type: 
  Country: None (occurrence: None)
  Receive Date: 20110429
  Receipt Date: 20110425
  Transmission Date: 20111010
  Serious: Yes (Other)
  Sender: FDA-Public Use
  Company Number: PHHY2011ES35190

PATIENT
  Age: 54 Year
  Sex: Male

DRUGS (1)
  1. OMNITROPE [Suspect]
     Indication: HYPOPITUITARISM
     Dosage: 400 UG, DAILY
     Route: 058
     Dates: start: 20101001

REACTIONS (3)
  - ERECTILE DYSFUNCTION [None]
  - ASTHENIA [None]
  - DEPRESSION [None]
